FAERS Safety Report 15260123 (Version 5)
Quarter: 2018Q4

REPORT INFORMATION
  Report Type: Spontaneous
  Country: ES (occurrence: ES)
  Receive Date: 20180809
  Receipt Date: 20181203
  Transmission Date: 20190204
  Serious: Yes (Other)
  Sender: FDA-Public Use
  Company Number: ES-AMGEN-ESPSP2018107131

PATIENT
  Sex: Female

DRUGS (3)
  1. PROLIA [Suspect]
     Active Substance: DENOSUMAB
     Indication: OSTEOPOROSIS
     Dosage: UNK
     Route: 065
  2. CALCIUM [Concomitant]
     Active Substance: CALCIUM
     Dosage: UNK
  3. VITAMINE D [Concomitant]
     Dosage: UNK

REACTIONS (14)
  - Colitis [Unknown]
  - Stomatitis [Unknown]
  - Glaucoma [Unknown]
  - Fibromyalgia [Unknown]
  - Gingival swelling [Recovered/Resolved]
  - Gingivitis [Not Recovered/Not Resolved]
  - Dry eye [Unknown]
  - Dry mouth [Unknown]
  - Dyspnoea [Unknown]
  - Osteoarthritis [Unknown]
  - Breast cancer [Unknown]
  - Osteomyelitis [Unknown]
  - Tooth infection [Unknown]
  - Gastritis [Unknown]

NARRATIVE: CASE EVENT DATE: 20180216
